FAERS Safety Report 6529436-X (Version None)
Quarter: 2010Q1

REPORT INFORMATION
  Report Type: 
  Country: None (occurrence: None)
  Receive Date: 20100107
  Receipt Date: 20100105
  Transmission Date: 20100710
  Serious: Yes (Hospitalization)
  Sender: FDA-Public Use
  Company Number: BE-ASTRAZENECA-2010SE00190

PATIENT
  Sex: Male

DRUGS (1)
  1. SEROQUEL [Suspect]
     Dosage: 60 TABLETS
     Route: 048

REACTIONS (3)
  - EPILEPSY [None]
  - OVERDOSE [None]
  - SUICIDE ATTEMPT [None]
